FAERS Safety Report 25974797 (Version 1)
Quarter: 2025Q4

REPORT INFORMATION
  Report Type: Spontaneous
  Country: US (occurrence: None)
  Receive Date: 20251028
  Receipt Date: 20251028
  Transmission Date: 20260117
  Serious: No
  Sender: FDA-CTU
  Company Number: None

PATIENT

DRUGS (15)
  1. TROPICAMIDE [Suspect]
     Active Substance: TROPICAMIDE
  2. PHENYLEPHRINE [Suspect]
     Active Substance: PHENYLEPHRINE
  3. TETRACAINE [Suspect]
     Active Substance: TETRACAINE
  4. CYCLOPENTOLATE [Suspect]
     Active Substance: CYCLOPENTOLATE
  5. ATROPINE [Suspect]
     Active Substance: ATROPINE
  6. Acuvue Oasys 1-Day [Concomitant]
  7. Dailies Total1 [Concomitant]
  8. Precision1 [Concomitant]
  9. Biotrue ONEday [Concomitant]
  10. MyDay daily disposables [Concomitant]
  11. Clariti 1-Day [Concomitant]
  12. Acuvue Oasys [Concomitant]
  13. Air Optix plus HydraGlyde [Concomitant]
  14. Biofinity [Concomitant]
  15. Biofinity Tonic [Concomitant]

REACTIONS (4)
  - Product dispensing error [None]
  - Expired product administered [None]
  - Device dispensing error [None]
  - Product distribution issue [None]
